FAERS Safety Report 20712567 (Version 1)
Quarter: 2022Q2

REPORT INFORMATION
  Report Type: Spontaneous
  Country: SE (occurrence: SE)
  Receive Date: 20220415
  Receipt Date: 20220415
  Transmission Date: 20220721
  Serious: Yes (Other)
  Sender: FDA-Public Use
  Company Number: None

PATIENT
  Age: 20 Year
  Sex: Female
  Weight: 95 kg

DRUGS (5)
  1. QUETIAPINE [Suspect]
     Active Substance: QUETIAPINE
     Indication: Depression
     Dosage: 1 TABLET 2 TIMES / DAY, UNIT DOSE: 50 MG, DURATION 1 DAY, DEPOT TABLETS
     Dates: start: 201908, end: 202009
  2. QUETIAPINE [Suspect]
     Active Substance: QUETIAPINE
     Indication: Anxiety
  3. MIRTAZAPINE [Concomitant]
     Active Substance: MIRTAZAPINE
  4. MELATONIN [Concomitant]
     Active Substance: MELATONIN
  5. BUPROPION HYDROCHLORIDE [Concomitant]
     Active Substance: BUPROPION HYDROCHLORIDE

REACTIONS (1)
  - Abnormal weight gain [Recovered/Resolved with Sequelae]

NARRATIVE: CASE EVENT DATE: 20190101
